FAERS Safety Report 15653587 (Version 1)
Quarter: 2018Q4

REPORT INFORMATION
  Report Type: Spontaneous
  Country: US (occurrence: US)
  Receive Date: 20181122
  Receipt Date: 20181122
  Transmission Date: 20190205
  Serious: Yes (Disabling)
  Sender: FDA-Public Use
  Company Number: None

PATIENT
  Age: 59 Year
  Sex: Female
  Weight: 85.5 kg

DRUGS (22)
  1. NORCO [Concomitant]
     Active Substance: ACETAMINOPHEN\HYDROCODONE BITARTRATE
  2. CLONAZEPAM. [Concomitant]
     Active Substance: CLONAZEPAM
  3. VIT DS [Concomitant]
  4. SELENIUM [Concomitant]
     Active Substance: SELENIUM
  5. CALCIUM [Concomitant]
     Active Substance: CALCIUM
  6. TOPAMAX [Concomitant]
     Active Substance: TOPIRAMATE
  7. MULTIVIT SANS FE [Concomitant]
  8. PROBIOTIC [Concomitant]
     Active Substance: PROBIOTICS NOS
  9. BUTRANS [Concomitant]
     Active Substance: BUPRENORPHINE
  10. SYNTHROID [Concomitant]
     Active Substance: LEVOTHYROXINE SODIUM
  11. MELATONIN [Concomitant]
     Active Substance: MELATONIN
  12. KRILL OIL [Concomitant]
     Active Substance: DIETARY SUPPLEMENT
  13. MAG GLYCINATE [Concomitant]
  14. PRIALT [Suspect]
     Active Substance: ZICONOTIDE ACETATE
     Indication: COMPLEX REGIONAL PAIN SYNDROME
     Dosage: ?          OTHER FREQUENCY:CONTINUOUS;?
     Route: 008
     Dates: start: 20181004, end: 20181023
  15. GABAPENTIN. [Concomitant]
     Active Substance: GABAPENTIN
  16. CLONIDINE. [Concomitant]
     Active Substance: CLONIDINE
  17. LUTEIN [Concomitant]
     Active Substance: LUTEIN
  18. SKELAXIN [Concomitant]
     Active Substance: METAXALONE
  19. AMLODIPINE [Concomitant]
     Active Substance: AMLODIPINE BESYLATE
  20. CO-ENZQ [Concomitant]
  21. BIOTIN [Concomitant]
     Active Substance: BIOTIN
  22. EGGSHELL MEMBRANE [Concomitant]

REACTIONS (9)
  - Drug ineffective [None]
  - Condition aggravated [None]
  - Traumatic delivery [None]
  - Maternal exposure during pregnancy [None]
  - Bedridden [None]
  - Pain [None]
  - Muscle spasms [None]
  - Inadequate analgesia [None]
  - Live birth [None]

NARRATIVE: CASE EVENT DATE: 20181004
